FAERS Safety Report 10532705 (Version 10)
Quarter: 2015Q4

REPORT INFORMATION
  Report Type: Report from Study
  Country: US (occurrence: US)
  Receive Date: 20141021
  Receipt Date: 20151022
  Transmission Date: 20160304
  Serious: Yes (Hospitalization)
  Sender: FDA-Public Use
  Company Number: US-ACTELION-A-US2014-105703

PATIENT
  Age: 57 Year
  Sex: Female

DRUGS (4)
  1. VELETRI [Suspect]
     Active Substance: EPOPROSTENOL
     Dosage: 16 NG/KG, PER MIN
     Route: 042
  2. REVATIO [Concomitant]
     Active Substance: SILDENAFIL CITRATE
  3. TYVASO [Concomitant]
     Active Substance: TREPROSTINIL
  4. VELETRI [Suspect]
     Active Substance: EPOPROSTENOL
     Indication: PULMONARY HYPERTENSION
     Dosage: 4 NG/KG, PER MIN
     Route: 042
     Dates: start: 20140827

REACTIONS (9)
  - Headache [Not Recovered/Not Resolved]
  - Nausea [Unknown]
  - Pneumothorax [Unknown]
  - Dyspnoea [Unknown]
  - Rash [Not Recovered/Not Resolved]
  - Pain in jaw [Unknown]
  - Musculoskeletal pain [Unknown]
  - Pneumonia [Unknown]
  - Diarrhoea [Unknown]
